FAERS Safety Report 15393308 (Version 1)
Quarter: 2018Q3

REPORT INFORMATION
  Report Type: Other
  Country: US (occurrence: US)
  Receive Date: 20180917
  Receipt Date: 20180917
  Transmission Date: 20181010
  Serious: No
  Sender: FDA-Public Use
  Company Number: US-LEADIANT BIOSCIENCES INC-2017STPI000715

PATIENT
  Sex: Male

DRUGS (5)
  1. LOMUSTINE. [Concomitant]
     Active Substance: LOMUSTINE
  2. MATULANE [Suspect]
     Active Substance: PROCARBAZINE HYDROCHLORIDE
     Indication: BRAIN NEOPLASM MALIGNANT
     Dosage: NIGHTLY 100 MG, QD
     Route: 048
     Dates: start: 20170209
  3. LAMICTAL [Concomitant]
     Active Substance: LAMOTRIGINE
  4. KLONOPIN [Concomitant]
     Active Substance: CLONAZEPAM
  5. COLACE [Concomitant]
     Active Substance: DOCUSATE SODIUM

REACTIONS (1)
  - Vomiting [Not Recovered/Not Resolved]
